FAERS Safety Report 8320265-3 (Version None)
Quarter: 2012Q2

REPORT INFORMATION
  Report Type: 
  Country: None (occurrence: None)
  Receive Date: 20120426
  Receipt Date: 20120426
  Transmission Date: 20120825
  Serious: Yes (Life-Threatening, Other)
  Sender: FDA-Public Use
  Company Number: None

PATIENT

DRUGS (1)
  1. ALLOPURINOL [Suspect]
     Dosage: 100 MILLIGRAMS
     Dates: start: 20071101, end: 20071101

REACTIONS (5)
  - TOXIC EPIDERMAL NECROLYSIS [None]
  - RENAL DISORDER [None]
  - PRODUCT QUALITY ISSUE [None]
  - RENAL FAILURE [None]
  - STEVENS-JOHNSON SYNDROME [None]
